FAERS Safety Report 4928108-2 (Version None)
Quarter: 2006Q1

REPORT INFORMATION
  Report Type: 
  Country: None (occurrence: None)
  Receive Date: 20060223
  Receipt Date: 20060213
  Transmission Date: 20060701
  Serious: No
  Sender: FDA-Public Use
  Company Number: DE-2005-023130

PATIENT
  Sex: Male

DRUGS (1)
  1. BETAFERON [Suspect]
     Dosage: SUBCUTANEOUS
     Route: 058
     Dates: start: 19990101

REACTIONS (4)
  - FEELING COLD [None]
  - GRANULOMA [None]
  - NECROSIS [None]
  - PAIN [None]
